FAERS Safety Report 16064781 (Version 3)
Quarter: 2019Q4

REPORT INFORMATION
  Report Type: Spontaneous
  Country: CA (occurrence: CA)
  Receive Date: 20190312
  Receipt Date: 20191227
  Transmission Date: 20200122
  Serious: Yes (Other)
  Sender: FDA-Public Use
  Company Number: CA-SAMSUNG BIOEPIS-SB-2019-05865

PATIENT
  Age: 14 Year
  Sex: Female

DRUGS (32)
  1. INFLIXIMAB [Suspect]
     Active Substance: INFLIXIMAB
     Indication: JUVENILE IDIOPATHIC ARTHRITIS
     Dosage: UNKNOWN
     Route: 065
  2. ETANERCEPT [Suspect]
     Active Substance: ETANERCEPT
     Indication: JUVENILE IDIOPATHIC ARTHRITIS
     Dosage: UNKNOWN
     Route: 065
  3. METHOTREXATE. [Suspect]
     Active Substance: METHOTREXATE
     Indication: JUVENILE IDIOPATHIC ARTHRITIS
     Dosage: UNKNOWN
     Route: 065
  4. CYCLOSPORIN A [Concomitant]
     Active Substance: CYCLOSPORINE
     Indication: JUVENILE IDIOPATHIC ARTHRITIS
     Dosage: UNKNOWN
     Route: 065
  5. CYCLOSPORINE. [Concomitant]
     Active Substance: CYCLOSPORINE
     Indication: PRODUCT USED FOR UNKNOWN INDICATION
     Dosage: UNKNOWN
     Route: 065
  6. METHOTREXATE. [Suspect]
     Active Substance: METHOTREXATE
     Indication: IRIDOCYCLITIS
  7. CALCIUM [Suspect]
     Active Substance: CALCIUM
     Indication: PRODUCT USED FOR UNKNOWN INDICATION
     Dosage: UNKNOWN
     Route: 065
  8. HYDROXYCHLOROQUINE [Concomitant]
     Active Substance: HYDROXYCHLOROQUINE
     Indication: JUVENILE IDIOPATHIC ARTHRITIS
     Dosage: UNKNOWN
     Route: 065
  9. ALENDRONIC ACID [Suspect]
     Active Substance: ALENDRONIC ACID
     Indication: PRODUCT USED FOR UNKNOWN INDICATION
     Dosage: UNKNOWN
     Route: 065
  10. ALENDRONATE [Suspect]
     Active Substance: ALENDRONATE SODIUM
     Indication: PRODUCT USED FOR UNKNOWN INDICATION
     Dosage: UNKNOWN
     Route: 065
  11. ENBREL [Suspect]
     Active Substance: ETANERCEPT
     Indication: JUVENILE IDIOPATHIC ARTHRITIS
     Dosage: UNKNOWN
     Route: 058
  12. ALENDRONATE [Concomitant]
     Active Substance: ALENDRONATE SODIUM
     Indication: JUVENILE IDIOPATHIC ARTHRITIS
     Dosage: UNKNOWN
     Route: 065
  13. IRON [Concomitant]
     Active Substance: IRON
     Indication: JUVENILE IDIOPATHIC ARTHRITIS
     Dosage: UNKNOWN
     Route: 065
  14. CICLOSPORIN [Suspect]
     Active Substance: CYCLOSPORINE
     Indication: IRIDOCYCLITIS
  15. LEFLUNOMIDE. [Suspect]
     Active Substance: LEFLUNOMIDE
     Indication: JUVENILE IDIOPATHIC ARTHRITIS
     Dosage: UNKNOWN
     Route: 065
  16. LEFLUNOMIDE. [Suspect]
     Active Substance: LEFLUNOMIDE
     Indication: IRIDOCYCLITIS
  17. AZATHIOPRINE. [Concomitant]
     Active Substance: AZATHIOPRINE
     Indication: JUVENILE IDIOPATHIC ARTHRITIS
     Dosage: UNKNOWN
     Route: 065
  18. INFLIXIMAB [Suspect]
     Active Substance: INFLIXIMAB
     Indication: IRIDOCYCLITIS
  19. CALCIUM CARBONATE. [Suspect]
     Active Substance: CALCIUM CARBONATE
     Indication: PRODUCT USED FOR UNKNOWN INDICATION
     Dosage: UNKNOWN
     Route: 065
  20. FERRIC HYDROXIDE POLYMALTOSE COMPLEX [Suspect]
     Active Substance: IRON POLYMALTOSE
     Indication: PRODUCT USED FOR UNKNOWN INDICATION
     Dosage: UNKNOWN
     Route: 065
  21. HYDROXYCHLOROQUINE SULFATE. [Suspect]
     Active Substance: HYDROXYCHLOROQUINE SULFATE
     Indication: PRODUCT USED FOR UNKNOWN INDICATION
     Dosage: UNKNOWN
     Route: 065
  22. ALENDRONATE SODIUM. [Concomitant]
     Active Substance: ALENDRONATE SODIUM
     Indication: PRODUCT USED FOR UNKNOWN INDICATION
     Dosage: UNKNOWN
     Route: 065
  23. AZATHIOPRINE. [Suspect]
     Active Substance: AZATHIOPRINE
     Indication: JUVENILE IDIOPATHIC ARTHRITIS
     Dosage: UNKNOWN
     Route: 065
  24. CALCIUM [Concomitant]
     Active Substance: CALCIUM
     Indication: JUVENILE IDIOPATHIC ARTHRITIS
     Dosage: UNKNOWN
     Route: 065
  25. AZATHIOPRINE. [Suspect]
     Active Substance: AZATHIOPRINE
     Indication: IRIDOCYCLITIS
  26. CICLOSPORIN [Suspect]
     Active Substance: CYCLOSPORINE
     Indication: JUVENILE IDIOPATHIC ARTHRITIS
     Dosage: UNKNOWN
     Route: 065
  27. ACETAZOLAMIDE. [Concomitant]
     Active Substance: ACETAZOLAMIDE
     Indication: JUVENILE IDIOPATHIC ARTHRITIS
     Dosage: UNKNOWN
     Route: 065
  28. CICLOSPORIN [Concomitant]
     Active Substance: CYCLOSPORINE
     Indication: PRODUCT USED FOR UNKNOWN INDICATION
     Dosage: UNKNOWN
     Route: 065
  29. MTX [Concomitant]
     Active Substance: METHOTREXATE SODIUM
     Indication: JUVENILE IDIOPATHIC ARTHRITIS
     Dosage: UNKNOWN
     Route: 065
  30. ACETAZOLAMIDE. [Suspect]
     Active Substance: ACETAZOLAMIDE
     Indication: PRODUCT USED FOR UNKNOWN INDICATION
     Dosage: UNKNOWN
     Route: 065
  31. REMICADE [Suspect]
     Active Substance: INFLIXIMAB
     Indication: JUVENILE IDIOPATHIC ARTHRITIS
     Dosage: UNKNOWN
     Route: 042
  32. LEFLUNOMIDE. [Concomitant]
     Active Substance: LEFLUNOMIDE
     Indication: JUVENILE IDIOPATHIC ARTHRITIS
     Dosage: UNKNOWN
     Route: 065

REACTIONS (2)
  - Off label use [Unknown]
  - Hair follicle tumour benign [Unknown]
